FAERS Safety Report 15594992 (Version 1)
Quarter: 2018Q4

REPORT INFORMATION
  Report Type: Spontaneous
  Country: US (occurrence: US)
  Receive Date: 20181106
  Receipt Date: 20181106
  Transmission Date: 20190205
  Serious: No
  Sender: FDA-Public Use
  Company Number: US-CELGENEUS-USA-20181100390

PATIENT
  Sex: Male

DRUGS (2)
  1. REVLIMID [Suspect]
     Active Substance: LENALIDOMIDE
     Indication: PLASMA CELL MYELOMA
     Dosage: 25 MILLIGRAM
     Route: 048
     Dates: start: 20170408
  2. REVLIMID [Suspect]
     Active Substance: LENALIDOMIDE
     Indication: ADJUSTMENT DISORDER WITH DEPRESSED MOOD
     Dosage: 10 MILLIGRAM
     Route: 048
     Dates: start: 201805

REACTIONS (1)
  - Quality of life decreased [Unknown]

NARRATIVE: CASE EVENT DATE: 2018
